FAERS Safety Report 12614079 (Version 1)
Quarter: 2016Q3

REPORT INFORMATION
  Report Type: Spontaneous
  Country: US (occurrence: None)
  Receive Date: 20160801
  Receipt Date: 20160801
  Transmission Date: 20161109
  Serious: Yes (Other)
  Sender: FDA-Public Use
  Company Number: None

PATIENT
  Age: 74 Year
  Sex: Female
  Weight: 65.77 kg

DRUGS (5)
  1. VICODIN [Concomitant]
     Active Substance: ACETAMINOPHEN\HYDROCODONE BITARTRATE
  2. LISINOPRIL. [Concomitant]
     Active Substance: LISINOPRIL
  3. WARFARIN, 5 MG [Suspect]
     Active Substance: WARFARIN
     Indication: PULMONARY EMBOLISM
     Dosage: 45. TABLET(S) ONCE A DAY ORAL
     Route: 048
     Dates: start: 20160618, end: 20160729
  4. XANAX [Concomitant]
     Active Substance: ALPRAZOLAM
  5. AMBIEN [Concomitant]
     Active Substance: ZOLPIDEM TARTRATE

REACTIONS (4)
  - Product substitution issue [None]
  - Product colour issue [None]
  - International normalised ratio fluctuation [None]
  - Product shape issue [None]

NARRATIVE: CASE EVENT DATE: 20160618
